FAERS Safety Report 5063064-0 (Version None)
Quarter: 2006Q3

REPORT INFORMATION
  Report Type: 
  Country: None (occurrence: None)
  Receive Date: 20060725
  Receipt Date: 20060725
  Transmission Date: 20061208
  Serious: Yes (Life-Threatening, Hospitalization)
  Sender: FDA-Public Use
  Company Number: None

PATIENT
  Sex: Female

DRUGS (2)
  1. HEPARIN SODIUM [Suspect]
     Indication: CORONARY ARTERY DISEASE
     Dosage: 30,000 UNITS ONE TIME IV
     Route: 042
     Dates: start: 20060625, end: 20060625
  2. HEPARIN [Suspect]
     Dosage: 5,000 UNITS ONE TIME IV
     Route: 042
     Dates: start: 20060625, end: 20060626

REACTIONS (2)
  - POST PROCEDURAL HAEMORRHAGE [None]
  - THROMBOCYTOPENIA [None]
